FAERS Safety Report 10076560 (Version 1)
Quarter: 2014Q2

REPORT INFORMATION
  Report Type: Spontaneous
  Country: US (occurrence: US)
  Receive Date: 20140414
  Receipt Date: 20140414
  Transmission Date: 20141212
  Serious: No
  Sender: FDA-Public Use
  Company Number: US-PFIZER INC-2014102576

PATIENT
  Sex: Male

DRUGS (7)
  1. LYRICA [Suspect]
     Dosage: UNK
  2. ZOLOFT [Suspect]
     Dosage: UNK
  3. NEURONTIN [Suspect]
     Dosage: UNK
  4. DAYPRO [Suspect]
     Dosage: UNK
  5. LIPITOR [Suspect]
     Dosage: UNK
  6. EFFEXOR XR [Suspect]
     Dosage: UNK
  7. DEPO-PROVERA [Suspect]
     Dosage: UNK

REACTIONS (2)
  - Nail disorder [Unknown]
  - Psoriasis [Unknown]
